FAERS Safety Report 7507305-6 (Version None)
Quarter: 2011Q2

REPORT INFORMATION
  Report Type: 
  Country: None (occurrence: None)
  Receive Date: 20110526
  Receipt Date: 20110523
  Transmission Date: 20111010
  Serious: Yes (Hospitalization, Congenital Anomaly, Other)
  Sender: FDA-Public Use
  Company Number: US-PFIZER INC-2008049851

PATIENT
  Sex: Female
  Weight: 2 kg

DRUGS (1)
  1. ZOLOFT [Suspect]
     Route: 064
     Dates: start: 20041101

REACTIONS (38)
  - CLEFT LIP AND PALATE [None]
  - GASTROOESOPHAGEAL REFLUX DISEASE [None]
  - MILD MENTAL RETARDATION [None]
  - FEEDING DISORDER NEONATAL [None]
  - EAR INFECTION [None]
  - ABDOMINAL PAIN [None]
  - CEREBRAL CALCIFICATION [None]
  - OTITIS MEDIA ACUTE [None]
  - CLINODACTYLY [None]
  - STRABISMUS [None]
  - CLAVICLE FRACTURE [None]
  - GAIT DISTURBANCE [None]
  - DRUG EXPOSURE DURING PREGNANCY [None]
  - CRANIOSYNOSTOSIS [None]
  - MULTIPLE CONGENITAL ABNORMALITIES [None]
  - HYPERMETROPIA [None]
  - CONSTIPATION [None]
  - NOSE DEFORMITY [None]
  - PERINATAL BRAIN DAMAGE [None]
  - OXYGEN SATURATION DECREASED [None]
  - ASTIGMATISM [None]
  - SCREAMING [None]
  - MASTICATION DISORDER [None]
  - NEUROPATHY PERIPHERAL [None]
  - AGGRESSION [None]
  - MIXED RECEPTIVE-EXPRESSIVE LANGUAGE DISORDER [None]
  - FINE MOTOR DELAY [None]
  - CONGENITAL FOOT MALFORMATION [None]
  - RUBINSTEIN-TAYBI SYNDROME [None]
  - DEVELOPMENTAL DELAY [None]
  - ANGELMAN'S SYNDROME [None]
  - ACROCHORDON [None]
  - DIARRHOEA [None]
  - WEIGHT GAIN POOR [None]
  - WOLF-HIRSCHHORN SYNDROME [None]
  - ANXIETY [None]
  - DECREASED APPETITE [None]
  - AUTISM [None]
